FAERS Safety Report 6502013-2 (Version None)
Quarter: 2009Q4

REPORT INFORMATION
  Report Type: 
  Country: None (occurrence: None)
  Receive Date: 20091216
  Receipt Date: 20091207
  Transmission Date: 20100525
  Serious: Yes (Hospitalization)
  Sender: FDA-Public Use
  Company Number: US-AMGEN-QUU379017

PATIENT
  Sex: Female

DRUGS (1)
  1. ENBREL [Suspect]
     Indication: ANKYLOSING SPONDYLITIS
     Route: 058
     Dates: start: 20080416

REACTIONS (6)
  - CONCUSSION [None]
  - SKIN LACERATION [None]
  - TOOTH INFECTION [None]
  - TOOTH INJURY [None]
  - TOOTH LOSS [None]
  - UPPER LIMB FRACTURE [None]
